FAERS Safety Report 8729354 (Version 3)
Quarter: 2012Q4

REPORT INFORMATION
  Report Type: 
  Country: FR (occurrence: FR)
  Receive Date: 20120817
  Receipt Date: 20120906
  Transmission Date: 20130627
  Serious: Yes (Hospitalization)
  Sender: FDA-Public Use
  Company Number: FR-PFIZER INC-2012191494

PATIENT
  Age: 80 Year
  Sex: Male

DRUGS (7)
  1. TAHOR [Suspect]
     Indication: HYPERCHOLESTEROLAEMIA
     Dosage: 80 mg, 1x/day
     Route: 048
     Dates: start: 20120228, end: 20120306
  2. INIPOMP [Suspect]
     Dosage: 20 mg, 1x/day
     Route: 048
     Dates: end: 2012
  3. INIPOMP [Suspect]
     Dosage: UNK
     Dates: start: 2012
  4. NISISCO [Suspect]
     Dosage: 1 DF (80mg/12.5mg), 1x/day
     Route: 048
     Dates: end: 2012
  5. KARDEGIC [Concomitant]
  6. STAGID [Concomitant]
  7. CIPRALAN [Concomitant]

REACTIONS (3)
  - Transient ischaemic attack [Unknown]
  - Blood creatine phosphokinase increased [Recovered/Resolved]
  - Myalgia [Recovered/Resolved]
